FAERS Safety Report 20097681 (Version 1)
Quarter: 2021Q4

REPORT INFORMATION
  Report Type: Other
  Country: US (occurrence: None)
  Receive Date: 20211122
  Receipt Date: 20211122
  Transmission Date: 20220303
  Serious: Yes (Other)
  Sender: FDA-Public Use
  Company Number: US-Invatech-000168

PATIENT
  Age: 52 Year
  Sex: Male

DRUGS (1)
  1. KAYEXALATE [Suspect]
     Active Substance: SODIUM POLYSTYRENE SULFONATE
     Indication: Product used for unknown indication

REACTIONS (3)
  - Gastrointestinal mucosal necrosis [Unknown]
  - Gastric pneumatosis [Unknown]
  - Crystal deposit intestine [Unknown]
